FAERS Safety Report 7882154-8 (Version None)
Quarter: 2011Q4

REPORT INFORMATION
  Report Type: 
  Country: None (occurrence: None)
  Receive Date: 20111101
  Receipt Date: 20110609
  Transmission Date: 20120403
  Serious: No
  Sender: FDA-Public Use
  Company Number: US-AMGEN-USASP2011029862

PATIENT
  Age: 59 Year
  Sex: Female
  Weight: 88.889 kg

DRUGS (12)
  1. CALCIUM [Concomitant]
     Dosage: UNK
  2. DYAZIDE [Concomitant]
     Dosage: UNK
  3. ENBREL [Suspect]
     Indication: PRODUCT USED FOR UNKNOWN INDICATION
     Dosage: 50 MG, QWK
     Route: 058
  4. ZOCOR [Concomitant]
     Dosage: 80 MG, UNK
     Route: 048
  5. ASPIRIN [Concomitant]
     Dosage: 81 MG, UNK
  6. NORVASC [Concomitant]
     Dosage: 5 MG, UNK
  7. NEURONTIN [Concomitant]
     Dosage: 100 MG, UNK
  8. MAVIK [Concomitant]
     Dosage: 1 MG, UNK
  9. VITAMIN B-12 [Concomitant]
     Dosage: 1000 MUG, UNK
  10. NEXIUM [Concomitant]
     Dosage: 40 MG, UNK
  11. CELEBREX [Concomitant]
     Dosage: 100 MG, UNK
  12. SYNTHROID [Concomitant]
     Dosage: 88 MUG, UNK

REACTIONS (1)
  - MUSCLE SPASMS [None]
